FAERS Safety Report 23721903 (Version 1)
Quarter: 2024Q2

REPORT INFORMATION
  Report Type: Spontaneous
  Country: SG (occurrence: None)
  Receive Date: 20240409
  Receipt Date: 20240409
  Transmission Date: 20240716
  Serious: Yes (Hospitalization, Other)
  Sender: FDA-Public Use
  Company Number: SG-Unichem Pharmaceuticals (USA) Inc-UCM202404-000325

PATIENT
  Age: 90 Year
  Sex: Female

DRUGS (1)
  1. DONEPEZIL [Suspect]
     Active Substance: DONEPEZIL
     Indication: Dementia

REACTIONS (2)
  - Depressed level of consciousness [Recovered/Resolved]
  - Atrioventricular block second degree [Recovered/Resolved]
